FAERS Safety Report 8958337 (Version 3)
Quarter: 2013Q2

REPORT INFORMATION
  Report Type: Spontaneous
  Country: US (occurrence: US)
  Receive Date: 20121210
  Receipt Date: 20130418
  Transmission Date: 20140414
  Serious: No
  Sender: FDA-Public Use
  Company Number: US-009507513-1212USA001265

PATIENT
  Age: 41 Year
  Sex: Male
  Weight: 99.77 kg

DRUGS (11)
  1. VICTRELIS [Suspect]
     Indication: HEPATITIS C
     Dosage: UNK
     Route: 048
     Dates: start: 20120713, end: 20130131
  2. RIBAVIRIN [Suspect]
     Indication: HEPATITIS C
     Dosage: UNK
     Route: 048
     Dates: start: 20120713, end: 20130131
  3. PEGINTRON [Suspect]
     Dosage: 150 MICROGRAM, QW
     Route: 058
     Dates: start: 20120723, end: 2012
  4. PEGINTRON [Suspect]
     Dosage: 135 MICROGRAM, QW
     Route: 058
     Dates: start: 2012
  5. ZOFRAN [Concomitant]
     Indication: NAUSEA
     Dosage: 8 MG, TID
     Route: 048
  6. LEXAPRO [Concomitant]
     Indication: BIPOLAR DISORDER
     Dosage: 20 MG, UNK
  7. LAMICTAL [Concomitant]
     Indication: BIPOLAR DISORDER
     Dosage: 400 MG, UNK
     Route: 048
  8. BETAMETHASONE DIPROPIONATE [Concomitant]
     Indication: RASH
     Dosage: UNK, PRN
     Route: 061
  9. AMBIEN [Concomitant]
     Indication: INSOMNIA
     Dosage: 10 MG, HS, PRN
  10. LIDOCAINE (+) NYSTATIN [Concomitant]
  11. OMEPRAZOLE [Concomitant]
     Indication: GASTROOESOPHAGEAL REFLUX DISEASE
     Dosage: 40 MG, UNK
     Route: 048

REACTIONS (4)
  - Neuropathy peripheral [Recovered/Resolved]
  - Influenza like illness [Unknown]
  - Arthralgia [Recovered/Resolved]
  - Pain in extremity [Recovered/Resolved]
